FAERS Safety Report 6376834-3 (Version None)
Quarter: 2009Q3

REPORT INFORMATION
  Report Type: 
  Country: None (occurrence: None)
  Receive Date: 20090924
  Receipt Date: 20090924
  Transmission Date: 20100115
  Serious: Yes (Life-Threatening, Hospitalization)
  Sender: FDA-Public Use
  Company Number: None

PATIENT
  Age: 22 Year
  Sex: Female
  Weight: 58.0604 kg

DRUGS (2)
  1. PHENYTOIN [Suspect]
     Indication: STEVENS-JOHNSON SYNDROME
     Dosage: 300MG
     Dates: start: 20090328, end: 20090419
  2. BCP [Concomitant]

REACTIONS (1)
  - STEVENS-JOHNSON SYNDROME [None]
